FAERS Safety Report 13646497 (Version 1)
Quarter: 2017Q2

REPORT INFORMATION
  Report Type: Spontaneous
  Country: US (occurrence: US)
  Receive Date: 20170613
  Receipt Date: 20170613
  Transmission Date: 20170830
  Serious: No
  Sender: FDA-Public Use
  Company Number: US-PFIZER INC-2017252637

PATIENT
  Age: 58 Year
  Sex: Male
  Weight: 112.49 kg

DRUGS (1)
  1. HYDROCORTISONE SODIUM SUCCINATE [Suspect]
     Active Substance: HYDROCORTISONE SODIUM SUCCINATE
     Indication: PAIN
     Dosage: UNK
     Dates: start: 20170606

REACTIONS (2)
  - Dyspnoea [Unknown]
  - Fatigue [Unknown]

NARRATIVE: CASE EVENT DATE: 20170606
